FAERS Safety Report 18205312 (Version 1)
Quarter: 2020Q3

REPORT INFORMATION
  Report Type: Spontaneous
  Country: US (occurrence: US)
  Receive Date: 20200827
  Receipt Date: 20200827
  Transmission Date: 20201103
  Serious: Yes (Other)
  Sender: FDA-Public Use
  Company Number: US-MYLANLABS-2020M1073132

PATIENT
  Sex: Male
  Weight: 102 kg

DRUGS (1)
  1. TRAMADOL HYDROCHLORIDE TABLETS, USP [Suspect]
     Active Substance: TRAMADOL HYDROCHLORIDE
     Indication: PRODUCT USED FOR UNKNOWN INDICATION
     Dosage: UNK
     Route: 065

REACTIONS (2)
  - Dependence [Recovered/Resolved with Sequelae]
  - Overdose [Recovered/Resolved with Sequelae]
